FAERS Safety Report 9446171 (Version 1)
Quarter: 2013Q3

REPORT INFORMATION
  Report Type: Spontaneous
  Country: US (occurrence: US)
  Receive Date: 20130807
  Receipt Date: 20130807
  Transmission Date: 20140515
  Serious: No
  Sender: FDA-Public Use
  Company Number: US-AMGEN-USASP2013047214

PATIENT
  Age: 53 Year
  Sex: Female

DRUGS (3)
  1. ENBREL [Suspect]
     Indication: PSORIATIC ARTHROPATHY
     Dosage: 50 MG, QWK
     Route: 065
     Dates: start: 20120401
  2. LEVAQUIN [Concomitant]
     Dosage: UNK
  3. CODEINE [Concomitant]
     Dosage: UNK

REACTIONS (5)
  - Respiratory tract congestion [Not Recovered/Not Resolved]
  - Wheezing [Not Recovered/Not Resolved]
  - Eyelids pruritus [Recovered/Resolved]
  - Pruritus [Recovered/Resolved]
  - Bronchitis [Not Recovered/Not Resolved]
